FAERS Safety Report 25282313 (Version 1)
Quarter: 2025Q2

REPORT INFORMATION
  Report Type: Spontaneous
  Country: MX (occurrence: MX)
  Receive Date: 20250508
  Receipt Date: 20250508
  Transmission Date: 20250716
  Serious: Yes (Death, Hospitalization, Other)
  Sender: ROCHE
  Company Number: MX-ROCHE-10000277620

PATIENT
  Age: 50 Year
  Sex: Female
  Weight: 112 kg

DRUGS (4)
  1. PERTUZUMAB [Suspect]
     Active Substance: PERTUZUMAB
     Indication: Breast cancer stage IV
     Route: 042
     Dates: start: 20220910, end: 20250307
  2. TRAZIMERA [Concomitant]
     Active Substance: TRASTUZUMAB-QYYP
     Route: 065
     Dates: start: 20220913, end: 20250307
  3. LETROZOLE [Concomitant]
     Active Substance: LETROZOLE
     Route: 048
     Dates: start: 20230622, end: 202502
  4. RIBOCICLIB [Concomitant]
     Active Substance: RIBOCICLIB
     Dosage: FOLLOWED BY A 7-DAY BREAK AFTER 21 DAYS AND RESTART
     Route: 048

REACTIONS (2)
  - Cerebral disorder [Not Recovered/Not Resolved]
  - Acute respiratory failure [Fatal]

NARRATIVE: CASE EVENT DATE: 20250324
